FAERS Safety Report 7853139-2 (Version None)
Quarter: 2011Q4

REPORT INFORMATION
  Report Type: 
  Country: None (occurrence: None)
  Receive Date: 20111026
  Receipt Date: 20111017
  Transmission Date: 20120403
  Serious: Yes (Death)
  Sender: FDA-Public Use
  Company Number: JP-MERCK-1110USA02811

PATIENT
  Age: 77 Year
  Sex: Male

DRUGS (3)
  1. FERROUS CITRATE [Concomitant]
     Route: 065
     Dates: start: 20110315, end: 20110709
  2. JANUVIA [Suspect]
     Indication: TYPE 2 DIABETES MELLITUS
     Route: 048
     Dates: start: 20110412, end: 20110917
  3. TAMSULOSIN HCL [Suspect]
     Indication: MICTURITION DISORDER
     Route: 048
     Dates: start: 20110225, end: 20110905

REACTIONS (1)
  - INTERSTITIAL LUNG DISEASE [None]
